FAERS Safety Report 7237324 (Version 2)
Quarter: 2014Q3

REPORT INFORMATION
  Report Type: Spontaneous
  Country: US (occurrence: None)
  Receive Date: 20091217
  Receipt Date: 20140701
  Transmission Date: 20150326
  Serious: Yes (Hospitalization, Other)
  Sender: FDA-Public Use
  Company Number: 2009S1008762

PATIENT
  Age: 65 Year
  Sex: Female

DRUGS (7)
  1. VYTORIN (SIMVASTATIN, EZETIMIBE) [Concomitant]
  2. LASIX [Concomitant]
     Active Substance: FUROSEMIDE
  3. TOPROL (METOPROLOL SUCCINATE) [Concomitant]
  4. DIOVAN HYDROCHLOROTHIAZIDE (HYDROCHLOROTHIAZIDE, VALSARTAN) [Concomitant]
  5. THYROXINE (LEVOTHYROXINE SODIUM) [Concomitant]
     Active Substance: LEVOTHYROXINE
  6. PHOSPHO-SODA [Suspect]
     Active Substance: SODIUM PHOSPHATE, DIBASIC\SODIUM PHOSPHATE, MONOBASIC
     Indication: COLONOSCOPY
     Dosage: ; PO
     Route: 048
     Dates: start: 20071205
  7. PLAVIX [Concomitant]
     Active Substance: CLOPIDOGREL BISULFATE

REACTIONS (16)
  - Flatulence [None]
  - Hypokalaemia [None]
  - Diarrhoea [None]
  - Renal disorder [None]
  - Dizziness [None]
  - Headache [None]
  - Nephrogenic anaemia [None]
  - Hyperphosphataemia [None]
  - Nausea [None]
  - Palpitations [None]
  - Hypomagnesaemia [None]
  - Renal failure chronic [None]
  - Hyperparathyroidism secondary [None]
  - Dehydration [None]
  - Abdominal pain [None]
  - Abdominal distension [None]

NARRATIVE: CASE EVENT DATE: 20071214
